FAERS Safety Report 4539049-7 (Version None)
Quarter: 2004Q4

REPORT INFORMATION
  Report Type: 
  Country: None (occurrence: None)
  Receive Date: 20041222
  Receipt Date: 20041206
  Transmission Date: 20050328
  Serious: Yes (Other)
  Sender: FDA-Public Use
  Company Number: A03200403423

PATIENT
  Age: 75 Year
  Sex: Female
  Weight: 69.4003 kg

DRUGS (4)
  1. PLAVIX [Suspect]
     Indication: INTERMITTENT CLAUDICATION
     Dosage: M75 MG QD - ORAL
     Route: 048
     Dates: start: 20040501, end: 20041101
  2. PLAVIX [Suspect]
     Indication: PERIPHERAL VASCULAR DISORDER
     Dosage: M75 MG QD - ORAL
     Route: 048
     Dates: start: 20040501, end: 20041101
  3. ACETYLSALICYLIC ACID SRT [Concomitant]
  4. PRAVASTATIN SODIUM [Concomitant]

REACTIONS (2)
  - LUNG NEOPLASM MALIGNANT [None]
  - MALIGNANT NEOPLASM PROGRESSION [None]
